FAERS Safety Report 17465304 (Version 3)
Quarter: 2020Q2

REPORT INFORMATION
  Report Type: Report from Study
  Country: DE (occurrence: DE)
  Receive Date: 20200226
  Receipt Date: 20200402
  Transmission Date: 20200713
  Serious: Yes (Death, Life-Threatening, Hospitalization)
  Sender: FDA-Public Use
  Company Number: DE-B.I. PHARMACEUTICALS,INC./RIDGEFIELD-2017-BI-038910

PATIENT
  Age: 71 Year
  Sex: Male
  Weight: 120 kg

DRUGS (5)
  1. GEMCITABINE. [Suspect]
     Active Substance: GEMCITABINE
     Indication: PANCREATIC CARCINOMA
     Dosage: STRENGTH: 1000 MG/M2
     Route: 042
     Dates: start: 20170623, end: 20170629
  2. PACLITAXEL ALBUMIN [Suspect]
     Active Substance: PACLITAXEL
     Indication: PANCREATIC CARCINOMA
     Dosage: STRENGTH: 125MG/M2
     Route: 042
     Dates: start: 20170623, end: 20170629
  3. AFATINIB [Suspect]
     Active Substance: AFATINIB
     Indication: PANCREATIC CARCINOMA
     Route: 048
     Dates: start: 20170623, end: 20170706
  4. GRANISETRON [Concomitant]
     Active Substance: GRANISETRON
     Indication: VOMITING
     Dosage: WEEKLY BEFORE CTX
     Route: 042
     Dates: start: 20170623
  5. DEXAMETHASON [DEXAMETHASONE] [Concomitant]
     Active Substance: DEXAMETHASONE
     Indication: VOMITING
     Dosage: DAILY DOSE: 8MG WEEKLY BEFORE CTX
     Route: 042
     Dates: start: 20170623

REACTIONS (3)
  - Urosepsis [Unknown]
  - Urinary tract infection [Unknown]
  - Clostridium difficile colitis [Fatal]

NARRATIVE: CASE EVENT DATE: 20170706
